FAERS Safety Report 8297149-2 (Version None)
Quarter: 2012Q2

REPORT INFORMATION
  Report Type: 
  Country: None (occurrence: None)
  Receive Date: 20120419
  Receipt Date: 20120417
  Transmission Date: 20120825
  Serious: No
  Sender: FDA-Public Use
  Company Number: US-PFIZER INC-2012095332

PATIENT
  Age: 64 Year
  Sex: Female
  Weight: 56.689 kg

DRUGS (1)
  1. ADVIL PM [Suspect]
     Indication: INSOMNIA
     Dosage: 400/76 MG, ONCE AT BEDTIME
     Route: 048
     Dates: start: 20120416, end: 20120417

REACTIONS (5)
  - MIDDLE INSOMNIA [None]
  - SOMNOLENCE [None]
  - PSYCHOMOTOR HYPERACTIVITY [None]
  - TREMOR [None]
  - DRUG INEFFECTIVE [None]
